FAERS Safety Report 6620471-X (Version None)
Quarter: 2010Q1

REPORT INFORMATION
  Report Type: 
  Country: None (occurrence: None)
  Receive Date: 20100304
  Receipt Date: 20100216
  Transmission Date: 20100710
  Serious: Yes (Hospitalization)
  Sender: FDA-Public Use
  Company Number: KV201000060

PATIENT
  Sex: Male

DRUGS (1)
  1. MORPHINE SULFATE [Suspect]
     Indication: DRUG USE FOR UNKNOWN INDICATION
     Dosage: , ORAL
     Route: 048

REACTIONS (10)
  - ASTHENIA [None]
  - CHEST DISCOMFORT [None]
  - DYSARTHRIA [None]
  - HOT FLUSH [None]
  - HYPOAESTHESIA [None]
  - LETHARGY [None]
  - MYOCARDIAL INFARCTION [None]
  - NARCOLEPSY [None]
  - OVERDOSE [None]
  - SYNCOPE [None]
